FAERS Safety Report 20513792 (Version 1)
Quarter: 2022Q1

REPORT INFORMATION
  Report Type: Spontaneous
  Country: US (occurrence: US)
  Receive Date: 20220224
  Receipt Date: 20220224
  Transmission Date: 20220423
  Serious: No
  Sender: FDA-Public Use
  Company Number: US-AMNEAL PHARMACEUTICALS-2021-AMRX-02934

PATIENT
  Age: 81 Year
  Sex: Male

DRUGS (4)
  1. RYTARY [Suspect]
     Active Substance: CARBIDOPA\LEVODOPA
     Indication: Product used for unknown indication
     Dosage: 23.75/95 MG, 1 CAPSULES, TID
     Route: 048
     Dates: start: 20210716, end: 202107
  2. RYTARY [Suspect]
     Active Substance: CARBIDOPA\LEVODOPA
     Dosage: 23.75/95 MG, 3 CAPSULES, TID
     Route: 048
     Dates: start: 20210720, end: 202107
  3. RYTARY [Suspect]
     Active Substance: CARBIDOPA\LEVODOPA
     Dosage: 23.75/95 MG, 4 CAPSULES, TID
     Route: 048
     Dates: start: 202107, end: 202107
  4. RYTARY [Suspect]
     Active Substance: CARBIDOPA\LEVODOPA
     Dosage: 36.32/145 MG, 3 CAPSULES, TID
     Route: 048
     Dates: start: 2021

REACTIONS (3)
  - Lethargy [Recovered/Resolved]
  - Asthenia [Recovered/Resolved]
  - Hallucination [Recovered/Resolved]

NARRATIVE: CASE EVENT DATE: 20210717
